FAERS Safety Report 17600084 (Version 1)
Quarter: 2020Q1

REPORT INFORMATION
  Report Type: Report from Study
  Country: CO (occurrence: CO)
  Receive Date: 20200330
  Receipt Date: 20200330
  Transmission Date: 20200409
  Serious: Yes (Other)
  Sender: FDA-Public Use
  Company Number: CO-ROCHE-1495655

PATIENT
  Sex: Female

DRUGS (5)
  1. ATORVASTATIN [Concomitant]
     Active Substance: ATORVASTATIN
  2. HERCEPTIN [Suspect]
     Active Substance: TRASTUZUMAB
     Indication: BREAST CANCER
     Route: 042
     Dates: start: 20140929
  3. AVASTIN [Suspect]
     Active Substance: BEVACIZUMAB
     Indication: OVARIAN CANCER
     Route: 065
  4. XELODA [Suspect]
     Active Substance: CAPECITABINE
     Indication: PRODUCT USED FOR UNKNOWN INDICATION
     Dosage: 7 IN THE MORNING 3 AFTER THE BREAKFAST AND AT NIGHT 4 AFTER THE MEAL
     Route: 048
  5. CYCLOPHOSPHAMIDE. [Concomitant]
     Active Substance: CYCLOPHOSPHAMIDE

REACTIONS (20)
  - Dry skin [Unknown]
  - Hypertension [Unknown]
  - Thermal burn [Unknown]
  - Ascites [Unknown]
  - Diarrhoea [Not Recovered/Not Resolved]
  - Malaise [Not Recovered/Not Resolved]
  - Bruxism [Unknown]
  - Tooth fracture [Unknown]
  - Skin discolouration [Unknown]
  - Tendonitis [Unknown]
  - Noninfective encephalitis [Recovering/Resolving]
  - Ear disorder [Unknown]
  - Colitis [Unknown]
  - Headache [Unknown]
  - Dizziness [Unknown]
  - Arthralgia [Unknown]
  - Inflammation [Unknown]
  - Dysstasia [Unknown]
  - Blood cholesterol increased [Unknown]
  - Neoplasm [Unknown]
